FAERS Safety Report 5862145-9 (Version None)
Quarter: 2008Q3

REPORT INFORMATION
  Report Type: 
  Country: None (occurrence: None)
  Receive Date: 20080828
  Receipt Date: 20080324
  Transmission Date: 20090109
  Serious: No
  Sender: FDA-Public Use
  Company Number: A0718466A

PATIENT
  Sex: Female

DRUGS (1)
  1. ACYCLOVIR [Suspect]
     Indication: GENITAL HERPES
     Route: 065

REACTIONS (8)
  - BLISTER [None]
  - DISABILITY [None]
  - FEELING ABNORMAL [None]
  - FEELING OF BODY TEMPERATURE CHANGE [None]
  - HERPES SIMPLEX [None]
  - LOCAL SWELLING [None]
  - MALAISE [None]
  - PHARYNGEAL OEDEMA [None]
